FAERS Safety Report 10518390 (Version 1)
Quarter: 2014Q4

REPORT INFORMATION
  Report Type: Spontaneous
  Country: US (occurrence: None)
  Receive Date: 20141014
  Receipt Date: 20141014
  Transmission Date: 20150528
  Serious: Yes (Disabling)
  Sender: FDA-Public Use
  Company Number: None

PATIENT
  Age: 22 Year
  Sex: Female
  Weight: 45.9 kg

DRUGS (1)
  1. METHOTREXATE [Suspect]
     Active Substance: METHOTREXATE
     Indication: LEUKAEMIA
     Dosage: METHOTREXATE 12 MG X1 INTRATHECAL
     Route: 037
     Dates: start: 20140811

REACTIONS (3)
  - Incontinence [None]
  - Arachnoiditis [None]
  - Paraesthesia [None]

NARRATIVE: CASE EVENT DATE: 20140811
